FAERS Safety Report 4988637-2 (Version None)
Quarter: 2006Q2

REPORT INFORMATION
  Report Type: 
  Country: None (occurrence: None)
  Receive Date: 20060426
  Receipt Date: 20060406
  Transmission Date: 20061013
  Serious: Yes (Hospitalization)
  Sender: FDA-Public Use
  Company Number: ZA200603007340

PATIENT
  Age: 21 Year
  Sex: Male

DRUGS (2)
  1. CYMBALTA [Suspect]
     Indication: MAJOR DEPRESSION
     Dosage: SEE IMAGE
     Route: 048
     Dates: start: 20060328, end: 20060328
  2. CYMBALTA [Suspect]
     Indication: MAJOR DEPRESSION
     Dosage: SEE IMAGE
     Route: 048
     Dates: start: 20060327

REACTIONS (10)
  - ALCOHOL USE [None]
  - BLOOD PRESSURE INCREASED [None]
  - DEPRESSION SUICIDAL [None]
  - DRY MOUTH [None]
  - HEADACHE [None]
  - HEART RATE INCREASED [None]
  - HYPERHIDROSIS [None]
  - INTENTIONAL OVERDOSE [None]
  - SOMNOLENCE [None]
  - TREMOR [None]
